FAERS Safety Report 8799959 (Version 1)
Quarter: 2012Q4

REPORT INFORMATION
  Report Type: Spontaneous
  Country: US (occurrence: None)
  Receive Date: 20120918
  Receipt Date: 20120918
  Transmission Date: 20130627
  Serious: No
  Sender: FDA-Public Use
  Company Number: None

PATIENT

DRUGS (1)
  1. PERCOCET [Suspect]
     Indication: POST PROCEDURAL PAIN
     Dosage: one pill

REACTIONS (6)
  - Rash pruritic [None]
  - Rash generalised [None]
  - Chest discomfort [None]
  - Respiratory disorder [None]
  - Hypersensitivity [None]
  - Asthma [None]
